FAERS Safety Report 6757985-8 (Version None)
Quarter: 2010Q2

REPORT INFORMATION
  Report Type: 
  Country: None (occurrence: None)
  Receive Date: 20100607
  Receipt Date: 20100526
  Transmission Date: 20101027
  Serious: Yes (Hospitalization)
  Sender: FDA-Public Use
  Company Number: CZ-AMGEN-QUU416184

PATIENT
  Sex: Female

DRUGS (9)
  1. ENBREL [Suspect]
     Indication: RHEUMATOID ARTHRITIS
     Route: 058
     Dates: start: 20090624, end: 20100310
  2. TONOCALCIN [Concomitant]
     Dosage: DOSE AND FREQUENCY NOT SPECIFIED
     Route: 045
     Dates: start: 20090701
  3. VIGANTOL [Concomitant]
     Dosage: DOSE AND FREQUENCY NOT SPECIFIED
     Dates: start: 20090701
  4. PERINDOPRIL ERBUMINE [Concomitant]
     Dosage: DOSE AND FREQUENCY NOT SPECIFIED
     Dates: start: 20090801
  5. LESCOL [Concomitant]
     Dosage: DOSE AND FREQUENCY NOT SPECIFIED
     Dates: start: 20090401
  6. LANSOPRAZOLE [Concomitant]
     Dosage: 30 MG (FREQUENCY NOT SPECIFIED)
     Dates: start: 20090901
  7. IBUPROFEN [Concomitant]
     Dosage: ^1 TBL. SPORADICALLY UNTIL SEP-2009 SINCE NOV-2009 QUITE EXTRAORDINARILY^
  8. MEDROL [Concomitant]
     Dosage: 4 MG EVERY OTHER DAY
     Dates: start: 20030301
  9. CALCIUM CARBONATE [Concomitant]
     Dosage: DOSE AND FREQUENCY NOT SPECIFIED
     Dates: start: 20090701

REACTIONS (7)
  - CONCOMITANT DISEASE PROGRESSION [None]
  - HYPERPARATHYROIDISM [None]
  - HYPOTHYROIDISM [None]
  - NEPHROTIC SYNDROME [None]
  - RENAL AMYLOIDOSIS [None]
  - RENAL FAILURE [None]
  - UPPER RESPIRATORY TRACT INFECTION [None]
